FAERS Safety Report 26010987 (Version 2)
Quarter: 2025Q4

REPORT INFORMATION
  Report Type: Report from Study
  Country: GB (occurrence: GB)
  Receive Date: 20251107
  Receipt Date: 20251127
  Transmission Date: 20260118
  Serious: Yes (Hospitalization)
  Sender: ABBVIE
  Company Number: GB-ABBVIE-6535717

PATIENT
  Sex: Female

DRUGS (1)
  1. RINVOQ [Suspect]
     Active Substance: UPADACITINIB
     Indication: Rheumatoid arthritis
     Dosage: FOA: MODIFIED-RELEASE TABLET?FORM STRENGTH: RINVOQ 15MG, FREQUENCY: EVERY MORNING
     Route: 048

REACTIONS (1)
  - Small intestinal obstruction [Unknown]
